FAERS Safety Report 17636087 (Version 3)
Quarter: 2020Q2

REPORT INFORMATION
  Report Type: Spontaneous
  Country: US (occurrence: US)
  Receive Date: 20200407
  Receipt Date: 20200515
  Transmission Date: 20200713
  Serious: Yes (Hospitalization, Other)
  Sender: FDA-Public Use
  Company Number: US-ASTRAZENECA-2020SE45935

PATIENT
  Sex: Male
  Weight: 81.2 kg

DRUGS (1)
  1. SYMBICORT [Suspect]
     Active Substance: BUDESONIDE\FORMOTEROL FUMARATE DIHYDRATE
     Dosage: 80/4.5 UG, TWO TIMES A DAY
     Route: 055
     Dates: start: 202002

REACTIONS (15)
  - Pneumonia [Unknown]
  - Swelling face [Recovering/Resolving]
  - Fluid retention [Unknown]
  - Intentional device misuse [Unknown]
  - Device malfunction [Unknown]
  - Dyspnoea [Unknown]
  - Product dose omission [Unknown]
  - Prostate cancer [Unknown]
  - Oral pain [Recovering/Resolving]
  - Gait inability [Recovering/Resolving]
  - Tachyarrhythmia [Unknown]
  - Weight fluctuation [Unknown]
  - Influenza [Recovered/Resolved with Sequelae]
  - Cardiac failure congestive [Recovered/Resolved with Sequelae]
  - Wrong technique in device usage process [Unknown]
